FAERS Safety Report 24050766 (Version 1)
Quarter: 2024Q3

REPORT INFORMATION
  Report Type: Report from Study
  Country: CA (occurrence: CA)
  Receive Date: 20240704
  Receipt Date: 20240704
  Transmission Date: 20241017
  Serious: Yes (Hospitalization)
  Sender: BIOCON
  Company Number: CA-BIOCON BIOLOGICS LIMITED-BBL2024004781

PATIENT

DRUGS (1)
  1. HULIO [Suspect]
     Active Substance: ADALIMUMAB-FKJP
     Indication: Crohn^s disease
     Dosage: 40 MG, 1 EVERY 1 WEEKS, SOLUTION
     Route: 058

REACTIONS (7)
  - Diarrhoea [Unknown]
  - Abscess [Unknown]
  - Hernia [Unknown]
  - Illness [Unknown]
  - Anal fistula [Unknown]
  - Surgery [Unknown]
  - Therapy partial responder [Unknown]
